FAERS Safety Report 14493058 (Version 1)
Quarter: 2018Q1

REPORT INFORMATION
  Report Type: Spontaneous
  Country: US (occurrence: US)
  Receive Date: 20180206
  Receipt Date: 20180206
  Transmission Date: 20180509
  Serious: Yes (Other)
  Sender: FDA-Public Use
  Company Number: None

PATIENT
  Age: 65 Year
  Sex: Male
  Weight: 138.35 kg

DRUGS (9)
  1. CHLORTHALIDONE. [Concomitant]
     Active Substance: CHLORTHALIDONE
  2. METFORMIN [Concomitant]
     Active Substance: METFORMIN HYDROCHLORIDE
  3. ATORVASTATIN [Concomitant]
     Active Substance: ATORVASTATIN
  4. VITAMIN C [Concomitant]
     Active Substance: ASCORBIC ACID
  5. INSULIN [Concomitant]
     Active Substance: INSULIN NOS
  6. RAMIPRIL. [Concomitant]
     Active Substance: RAMIPRIL
  7. MULTIHANCE [Suspect]
     Active Substance: GADOBENATE DIMEGLUMINE
  8. ASPIRIN. [Concomitant]
     Active Substance: ASPIRIN
  9. VITAMIN D [Concomitant]
     Active Substance: CHOLECALCIFEROL

REACTIONS (10)
  - Diarrhoea [None]
  - Dyspepsia [None]
  - Sensation of foreign body [None]
  - Malaise [None]
  - Oral pruritus [None]
  - Abdominal pain upper [None]
  - Abdominal distension [None]
  - Nausea [None]
  - Vomiting [None]
  - Oesophageal pain [None]

NARRATIVE: CASE EVENT DATE: 20180122
